FAERS Safety Report 6116564-6 (Version None)
Quarter: 2009Q1

REPORT INFORMATION
  Report Type: 
  Country: None (occurrence: None)
  Receive Date: 20090314
  Receipt Date: 20081231
  Transmission Date: 20090719
  Serious: No
  Sender: FDA-Public Use
  Company Number: US-ABBOTT-08P-163-0493766-00

PATIENT
  Sex: Female
  Weight: 56.75 kg

DRUGS (2)
  1. HUMIRA [Suspect]
     Indication: PSORIATIC ARTHROPATHY
     Route: 058
     Dates: start: 20081213
  2. HUMIRA [Suspect]
     Indication: PSORIASIS

REACTIONS (7)
  - ANXIETY [None]
  - FATIGUE [None]
  - NAUSEA [None]
  - RASH [None]
  - RASH MACULAR [None]
  - VOMITING [None]
  - WEIGHT DECREASED [None]
